FAERS Safety Report 15565937 (Version 4)
Quarter: 2022Q3

REPORT INFORMATION
  Report Type: Report from Study
  Country: JP (occurrence: JP)
  Receive Date: 20181030
  Receipt Date: 20220713
  Transmission Date: 20221027
  Serious: Yes (Life-Threatening, Hospitalization, Disabling, Other)
  Sender: FDA-Public Use
  Company Number: JP-GLAXOSMITHKLINE-JP2018JPN066681

PATIENT

DRUGS (26)
  1. BELIMUMAB [Suspect]
     Active Substance: BELIMUMAB
     Indication: Systemic lupus erythematosus
     Dosage: 10 MG/KG, ONCE IN EVERY TWO WEEKS
     Route: 041
     Dates: start: 20180403, end: 20180501
  2. BELIMUMAB [Suspect]
     Active Substance: BELIMUMAB
     Dosage: 10 MG/KG, ONCE IN EVERYFOUR WEEKS
     Route: 041
     Dates: start: 20180529, end: 20180828
  3. BELIMUMAB [Suspect]
     Active Substance: BELIMUMAB
     Dosage: 10 MG/KG, ONCE IN EVERY FOUR WEEKS
     Route: 041
     Dates: start: 20180925, end: 20181106
  4. PREDNISOLONE [Suspect]
     Active Substance: PREDNISOLONE
     Indication: Systemic lupus erythematosus
     Dosage: 10 MG, QD, AFTER BREAKFAST
     Route: 048
     Dates: start: 20180108, end: 20181106
  5. PREDNISOLONE [Suspect]
     Active Substance: PREDNISOLONE
     Dosage: 9 MG, 1D
     Route: 048
     Dates: start: 20181107, end: 20181204
  6. PREDNISOLONE [Suspect]
     Active Substance: PREDNISOLONE
     Dosage: 8 MG, 1D
     Route: 048
     Dates: start: 20181205, end: 20190108
  7. PREDNISOLONE [Suspect]
     Active Substance: PREDNISOLONE
     Dosage: 7.5 MG, 1D
     Route: 048
     Dates: start: 20190109, end: 20190205
  8. PREDNISOLONE [Suspect]
     Active Substance: PREDNISOLONE
     Dosage: 7 MG, 1D
     Route: 048
     Dates: start: 20190206
  9. CELLCEPT [Suspect]
     Active Substance: MYCOPHENOLATE MOFETIL
     Indication: Lupus nephritis
     Dosage: 750 MG, BID
     Route: 048
  10. CELLCEPT [Suspect]
     Active Substance: MYCOPHENOLATE MOFETIL
     Indication: Systemic lupus erythematosus
     Dosage: 1000 MG, BID,AFTER BREAKFAST,DINNER
     Route: 048
  11. URINORM (BENZBROMARONE) [Concomitant]
     Dosage: 75 MG, QD, AFTER BREAKFAST
  12. TRAMADOL HYDROCHLORIDE [Concomitant]
     Active Substance: TRAMADOL HYDROCHLORIDE
     Dosage: 100 MG, QD, AFTER BREAKFAST
  13. BEZAFIBRATE [Concomitant]
     Active Substance: BEZAFIBRATE
     Dosage: 200 MG, QD, AFTER BREAKFAST
  14. OMEGA-3-ACID ETHYL ESTERS [Concomitant]
     Active Substance: OMEGA-3-ACID ETHYL ESTERS
     Dosage: 2 G, QD, AFTER BREAKFAST
  15. ZETIA [Concomitant]
     Active Substance: EZETIMIBE
     Dosage: 10 MG, QD, AFTER BREAKFAST
  16. ALFACALCIDOL [Concomitant]
     Active Substance: ALFACALCIDOL
     Dosage: 0.25 ?G, QD, AFTER BREAKFAST
  17. LANSOPRAZOLE [Concomitant]
     Active Substance: LANSOPRAZOLE
     Dosage: 30 MG, QD, AFTER BREAKFAST
  18. AMLODIPINE [Concomitant]
     Active Substance: AMLODIPINE BESYLATE
     Dosage: 5 MG, BID, AFTER BREAKFAST, AFTER DINNER
  19. ASPIRIN [Concomitant]
     Active Substance: ASPIRIN
     Dosage: 100 MG, QD, AFTER BREAKFAST
  20. CALONAL [Concomitant]
     Active Substance: ACETAMINOPHEN
     Dosage: 600 MG, BID, AFTER BREAKFAST, AFTER DINNER
  21. SODIUM FERROUS CITRATE [Concomitant]
     Active Substance: SODIUM FERROUS CITRATE
     Dosage: 50 MG, QD, AFTER BREAKFAST
  22. SENNOSIDES [Concomitant]
     Active Substance: SENNOSIDES
     Indication: Constipation
     Dosage: 12 MG, PRN,AT CONSTIPATION
  23. ESFLURBIPROFEN\HERBALS [Concomitant]
     Active Substance: ESFLURBIPROFEN\HERBALS
     Dosage: 1 DF, QD, FOR LOW BACK
  24. SULFAMETHOXAZOLE\TRIMETHOPRIM [Concomitant]
     Active Substance: SULFAMETHOXAZOLE\TRIMETHOPRIM
     Dosage: 1 DF, UNK,AFTER BREAKFAST, EVERY WEDNESDAY AND FRIDAY
  25. MINODRONIC ACID [Concomitant]
     Active Substance: MINODRONIC ACID
     Dosage: 50 MG, CYC,EVERY FOUR WEEKS,RIGHT AFTER WAKING UP
  26. FENOFIBRATE [Concomitant]
     Active Substance: FENOFIBRATE
     Dosage: UNK

REACTIONS (3)
  - Herpes zoster [Recovering/Resolving]
  - Aortic dissection [Recovering/Resolving]
  - Abdominal pain lower [Recovering/Resolving]

NARRATIVE: CASE EVENT DATE: 20180410
